FAERS Safety Report 6998231-X (Version None)
Quarter: 2010Q3

REPORT INFORMATION
  Report Type: 
  Country: None (occurrence: None)
  Receive Date: 20100920
  Receipt Date: 20070711
  Transmission Date: 20110219
  Serious: Yes (Hospitalization)
  Sender: FDA-Public Use
  Company Number: US-ASTRAZENECA-2006UW24334

PATIENT
  Age: 20341 Day
  Sex: Female
  Weight: 102.5 kg

DRUGS (3)
  1. SEROQUEL [Suspect]
     Indication: DEPRESSION
     Route: 048
     Dates: start: 19980101, end: 19990101
  2. ZYPREXA [Suspect]
     Dates: start: 19990101
  3. ZYPREXA [Suspect]
     Route: 048
     Dates: start: 20000508

REACTIONS (3)
  - DIABETES MELLITUS [None]
  - HYPOGLYCAEMIA [None]
  - TYPE 1 DIABETES MELLITUS [None]
